FAERS Safety Report 5652018-9 (Version None)
Quarter: 2008Q1

REPORT INFORMATION
  Report Type: 
  Country: None (occurrence: None)
  Receive Date: 20080305
  Receipt Date: 20080222
  Transmission Date: 20080703
  Serious: Yes (Other)
  Sender: FDA-Public Use
  Company Number: US-PFIZER INC-2008017243

PATIENT
  Sex: Male
  Weight: 74.8 kg

DRUGS (6)
  1. DILANTIN [Suspect]
     Indication: CONVULSION
     Route: 048
  2. PHENYTOIN [Suspect]
     Indication: CONVULSION
     Dates: start: 20050101, end: 20050101
  3. LEXAPRO [Concomitant]
  4. LEVOXYL [Concomitant]
  5. KEPPRA [Concomitant]
  6. ALL OTHER THERAPEUTIC PRODUCTS [Concomitant]

REACTIONS (5)
  - ANTICONVULSANT DRUG LEVEL INCREASED [None]
  - CEREBROVASCULAR DISORDER [None]
  - DRUG LEVEL FLUCTUATING [None]
  - EPILEPTIC AURA [None]
  - UNEVALUABLE EVENT [None]
